FAERS Safety Report 7973715-6 (Version None)
Quarter: 2011Q4

REPORT INFORMATION
  Report Type: 
  Country: None (occurrence: None)
  Receive Date: 20111213
  Receipt Date: 20111213
  Transmission Date: 20120403
  Serious: Yes (Hospitalization)
  Sender: FDA-Public Use
  Company Number: None

PATIENT
  Age: 86 Year
  Sex: Female

DRUGS (11)
  1. FENOFIBRATE [Concomitant]
     Route: 050
  2. WARFARIN SODIUM [Suspect]
     Indication: DEEP VEIN THROMBOSIS
     Dosage: 6 MG
     Route: 048
  3. OMEPRAZOLE [Concomitant]
     Route: 050
  4. GERI-VITE [Concomitant]
     Route: 050
  5. METOPROLOL TARTRATE [Concomitant]
     Route: 050
  6. ENOXAPARIN [Concomitant]
     Indication: DEEP VEIN THROMBOSIS
     Dosage: 80 MG
     Route: 058
  7. AMLODIPINE [Concomitant]
     Route: 050
  8. ASCORBIC ACID [Concomitant]
     Route: 050
  9. APAP EXTRA STRENGTH [Concomitant]
     Route: 050
  10. ENALAPRIL MALEATE [Concomitant]
     Route: 050
  11. MILK OF MAGNESIA TAB [Concomitant]
     Route: 050

REACTIONS (9)
  - PNEUMONIA [None]
  - MEDICATION ERROR [None]
  - ANAEMIA [None]
  - LIVER FUNCTION TEST ABNORMAL [None]
  - INTERNATIONAL NORMALISED RATIO INCREASED [None]
  - URINARY TRACT INFECTION [None]
  - GASTROINTESTINAL HAEMORRHAGE [None]
  - SEPSIS [None]
  - TOXICITY TO VARIOUS AGENTS [None]
